FAERS Safety Report 4788486-4 (Version None)
Quarter: 2005Q4

REPORT INFORMATION
  Report Type: 
  Country: None (occurrence: None)
  Receive Date: 20051005
  Receipt Date: 20050727
  Transmission Date: 20060501
  Serious: Yes (Hospitalization)
  Sender: FDA-Public Use
  Company Number: 2005CG01316

PATIENT
  Age: 63 Year
  Sex: Female

DRUGS (6)
  1. NEXIUM [Suspect]
     Route: 048
     Dates: start: 20050211, end: 20050306
  2. GLUCOPHAGE [Concomitant]
     Route: 048
  3. ZOCOR [Concomitant]
     Route: 048
  4. FEXOFENADINE HCL [Concomitant]
     Route: 048
  5. SERETIDE [Concomitant]
  6. HUMALOG MIX [Concomitant]

REACTIONS (2)
  - ACUTE GENERALISED EXANTHEMATOUS PUSTULOSIS [None]
  - BLOOD GLUCOSE INCREASED [None]
